FAERS Safety Report 4337086-9 (Version None)
Quarter: 2004Q1

REPORT INFORMATION
  Report Type: 
  Country: None (occurrence: None)
  Receive Date: 20040329
  Receipt Date: 20031125
  Transmission Date: 20041129
  Serious: No
  Sender: FDA-Public Use
  Company Number: USA031153461

PATIENT
  Age: 7 Year
  Sex: Male
  Weight: 22 kg

DRUGS (2)
  1. STRATTERA [Suspect]
     Indication: PERVASIVE DEVELOPMENTAL DISORDER
     Dosage: 25 MG/DAY
     Dates: start: 20030101, end: 20031118
  2. ABILIFY [Concomitant]

REACTIONS (5)
  - ABNORMAL BEHAVIOUR [None]
  - AGGRESSION [None]
  - ANGER [None]
  - DRUG EFFECT DECREASED [None]
  - FEELING ABNORMAL [None]
